FAERS Safety Report 5234293-8 (Version None)
Quarter: 2007Q1

REPORT INFORMATION
  Report Type: 
  Country: None (occurrence: None)
  Receive Date: 20070209
  Receipt Date: 20070202
  Transmission Date: 20070707
  Serious: Yes (Other)
  Sender: FDA-Public Use
  Company Number: US-AVENTIS-200710748US

PATIENT
  Age: 51 Year
  Sex: Female

DRUGS (3)
  1. LANTUS [Suspect]
     Dates: start: 20020101, end: 20070201
  2. NOVOLOG [Concomitant]
     Dosage: DOSE: SLIDING SCALE
  3. HYDROCODONE [Concomitant]
     Indication: PAIN
     Dosage: DOSE: UNK

REACTIONS (3)
  - BLOOD GLUCOSE INCREASED [None]
  - DRUG INEFFECTIVE [None]
  - LIP AND/OR ORAL CAVITY CANCER [None]
